FAERS Safety Report 6540636-5 (Version None)
Quarter: 2010Q1

REPORT INFORMATION
  Report Type: 
  Country: None (occurrence: None)
  Receive Date: 20100118
  Receipt Date: 20100112
  Transmission Date: 20100710
  Serious: Yes (Other)
  Sender: FDA-Public Use
  Company Number: DE-ROCHE-657111

PATIENT
  Sex: Male
  Weight: 65 kg

DRUGS (1)
  1. TAMIFLU [Suspect]
     Indication: INFLUENZA
     Dosage: ONLY ONE DOSE TAKEN
     Route: 048
     Dates: start: 20090807, end: 20090807

REACTIONS (4)
  - DISORIENTATION [None]
  - HALLUCINATION [None]
  - PANIC ATTACK [None]
  - RETROGRADE AMNESIA [None]
